FAERS Safety Report 4297392-3 (Version None)
Quarter: 2004Q1

REPORT INFORMATION
  Report Type: 
  Country: None (occurrence: None)
  Receive Date: 20040126
  Receipt Date: 20030915
  Transmission Date: 20041129
  Serious: No
  Sender: FDA-Public Use
  Company Number: USA030947205

PATIENT
  Age: 7 Year
  Sex: Female
  Weight: 42 kg

DRUGS (2)
  1. STRATTERA [Suspect]
     Dosage: 50 MG/IN THE MORNING
     Dates: start: 20030719
  2. PROZAC [Concomitant]

REACTIONS (5)
  - ABNORMAL BEHAVIOUR [None]
  - CRYING [None]
  - DAYDREAMING [None]
  - DRUG INEFFECTIVE [None]
  - SOMNOLENCE [None]
